FAERS Safety Report 12307992 (Version 1)
Quarter: 2016Q2

REPORT INFORMATION
  Report Type: Spontaneous
  Country: US (occurrence: US)
  Receive Date: 20160426
  Receipt Date: 20160426
  Transmission Date: 20160815
  Serious: No
  Sender: FDA-Public Use
  Company Number: US-ALKERMES INC.-ALK-2016-000376

PATIENT

DRUGS (2)
  1. VIVITROL [Suspect]
     Active Substance: NALTREXONE
     Indication: DRUG DEPENDENCE
     Dosage: 380 MG, QMO
     Route: 030
     Dates: start: 20150330
  2. VIVITROL [Suspect]
     Active Substance: NALTREXONE
     Indication: SUBSTANCE ABUSE

REACTIONS (9)
  - Gastrointestinal disorder [Recovered/Resolved]
  - Thinking abnormal [Not Recovered/Not Resolved]
  - Chromaturia [Recovering/Resolving]
  - Memory impairment [Not Recovered/Not Resolved]
  - Activities of daily living impaired [Recovered/Resolved]
  - Dehydration [Unknown]
  - Influenza like illness [Not Recovered/Not Resolved]
  - Vertigo [Recovered/Resolved]
  - Dizziness [Recovered/Resolved]

NARRATIVE: CASE EVENT DATE: 201503
